FAERS Safety Report 16874732 (Version 2)
Quarter: 2019Q4

REPORT INFORMATION
  Report Type: Spontaneous
  Country: US (occurrence: US)
  Receive Date: 20191001
  Receipt Date: 20191102
  Transmission Date: 20200122
  Serious: Yes (Other)
  Sender: FDA-Public Use
  Company Number: PHEH2019US038729

PATIENT
  Age: 1 Year
  Sex: Female
  Weight: 11.2 kg

DRUGS (1)
  1. ZOLGENSMA [Suspect]
     Active Substance: ONASEMNOGENE ABEPARVOVEC-XIOI
     Indication: PRODUCT USED FOR UNKNOWN INDICATION
     Dosage: 60.5 ML, ONCE/SINGLE (1.1 X 10E14 VG/KG)
     Route: 042
     Dates: start: 20190730, end: 20190730

REACTIONS (3)
  - Aspartate aminotransferase increased [Unknown]
  - Alanine aminotransferase increased [Unknown]
  - Gamma-glutamyltransferase increased [Unknown]

NARRATIVE: CASE EVENT DATE: 20190917
